FAERS Safety Report 7462818-0 (Version None)
Quarter: 2011Q2

REPORT INFORMATION
  Report Type: 
  Country: None (occurrence: None)
  Receive Date: 20110506
  Receipt Date: 20110426
  Transmission Date: 20111010
  Serious: Yes (Death)
  Sender: FDA-Public Use
  Company Number: US-CELGENEUS-087-50794-11043585

PATIENT
  Age: 73 Year
  Sex: Male

DRUGS (11)
  1. VIDAZA [Suspect]
     Dosage: 100 MILLIGRAM
     Route: 051
     Dates: start: 20110418, end: 20110422
  2. ITRIZOLE [Concomitant]
     Dosage: 200 MILLIGRAM
     Route: 065
  3. MUCODYNE [Concomitant]
     Dosage: 1500 MILLIGRAM
     Route: 065
  4. BLADDERON [Concomitant]
     Dosage: 600 MILLIGRAM
     Route: 065
  5. ALLOPURINOL [Concomitant]
     Dosage: 40 MILLIGRAM
     Route: 065
  6. VIDAZA [Suspect]
     Dosage: 100 MILLIGRAM
     Route: 051
     Dates: start: 20110314, end: 20110320
  7. MAGLAX [Concomitant]
     Dosage: 500 MILLIGRAM
     Route: 065
  8. CRAVIT [Concomitant]
     Dosage: 500 MILLIGRAM
     Route: 065
  9. LASIX [Concomitant]
     Dosage: 40 MILLIGRAM
     Route: 065
  10. ALDACTONE [Concomitant]
     Dosage: 50 MILLIGRAM
     Route: 065
  11. HOKUNALIN [Concomitant]
     Dosage: 2 MILLIGRAM
     Route: 065

REACTIONS (1)
  - CARDIO-RESPIRATORY ARREST [None]
